FAERS Safety Report 12287636 (Version 3)
Quarter: 2016Q4

REPORT INFORMATION
  Report Type: Spontaneous
  Country: US (occurrence: US)
  Receive Date: 20160420
  Receipt Date: 20161121
  Transmission Date: 20170207
  Serious: No
  Sender: FDA-Public Use
  Company Number: US-PFIZER INC-2016221800

PATIENT
  Age: 67 Year
  Sex: Female

DRUGS (1)
  1. IBRANCE [Suspect]
     Active Substance: PALBOCICLIB
     Dosage: 100 MG, DAILY
     Dates: start: 20160407

REACTIONS (8)
  - Abdominal discomfort [Unknown]
  - Ear disorder [Unknown]
  - Insomnia [Unknown]
  - Nausea [Unknown]
  - Diarrhoea [Unknown]
  - Neck pain [Unknown]
  - Arthralgia [Unknown]
  - Spinal pain [Unknown]
